FAERS Safety Report 7481772-9 (Version None)
Quarter: 2011Q2

REPORT INFORMATION
  Report Type: 
  Country: None (occurrence: None)
  Receive Date: 20110516
  Receipt Date: 20110509
  Transmission Date: 20111010
  Serious: Yes (Other)
  Sender: FDA-Public Use
  Company Number: US-SANOFI-AVENTIS-2011SA029050

PATIENT
  Age: 66 Year
  Sex: Female
  Weight: 115.21 kg

DRUGS (5)
  1. HUMIRA [Suspect]
     Indication: ANKYLOSING SPONDYLITIS
     Route: 051
     Dates: start: 20090501, end: 20110101
  2. HUMIRA [Suspect]
     Route: 051
     Dates: start: 20090501, end: 20110101
  3. SULFASALAZINE [Suspect]
     Route: 065
  4. METHOTREXATE [Suspect]
     Route: 065
  5. HYDROXYCHLOROQUINE SULFATE [Suspect]
     Route: 065

REACTIONS (3)
  - HEPATIC ENZYME INCREASED [None]
  - OSTEOARTHRITIS [None]
  - HEPATIC STEATOSIS [None]
